FAERS Safety Report 9130335 (Version 1)
Quarter: 2013Q1

REPORT INFORMATION
  Report Type: Spontaneous
  Country: GB (occurrence: GB)
  Receive Date: 20130228
  Receipt Date: 20130228
  Transmission Date: 20140127
  Serious: Yes (Other)
  Sender: FDA-Public Use
  Company Number: GB-009507513-1302GBR011839

PATIENT
  Age: 28 Year
  Sex: Female

DRUGS (2)
  1. MIRTAZAPINE [Suspect]
     Indication: DEPRESSION
     Dosage: 15 MG, UNK
     Route: 048
     Dates: start: 20121208, end: 20121215
  2. MIRTAZAPINE [Suspect]
     Dosage: 15 MG, UNK
     Route: 048
     Dates: start: 20130126, end: 20130127

REACTIONS (2)
  - Mouth haemorrhage [Recovered/Resolved]
  - Gingival bleeding [Recovered/Resolved]
